FAERS Safety Report 4520561-1 (Version None)
Quarter: 2004Q4

REPORT INFORMATION
  Report Type: 
  Country: None (occurrence: None)
  Receive Date: 20041203
  Receipt Date: 20041123
  Transmission Date: 20050328
  Serious: Yes (Other)
  Sender: FDA-Public Use
  Company Number: 2004097667

PATIENT
  Age: 67 Year
  Sex: Female

DRUGS (3)
  1. PROVERA [Suspect]
     Indication: HORMONE REPLACEMENT THERAPY
     Dosage: ORAL
     Route: 048
     Dates: start: 19870101, end: 20010101
  2. CONJUGATED ESTROGENS [Suspect]
     Indication: HORMONE REPLACEMENT THERAPY
     Dosage: ORAL
     Route: 048
     Dates: start: 19870101, end: 20010101
  3. ESTRADIOL [Suspect]
     Indication: HORMONE REPLACEMENT THERAPY
     Dosage: ORAL
     Route: 048
     Dates: start: 19870101, end: 20010101

REACTIONS (2)
  - BREAST CANCER [None]
  - OESTROGEN RECEPTOR ASSAY POSITIVE [None]
